FAERS Safety Report 9660608 (Version 2)
Quarter: 2013Q4

REPORT INFORMATION
  Report Type: Spontaneous
  Country: US (occurrence: US)
  Receive Date: 20131031
  Receipt Date: 20131119
  Transmission Date: 20140711
  Serious: Yes (Hospitalization)
  Sender: FDA-Public Use
  Company Number: US-RB-060100-13

PATIENT
  Age: 30 Year
  Sex: Female

DRUGS (2)
  1. SUBOXONE UNSPECIFIED [Suspect]
     Indication: PRODUCT USED FOR UNKNOWN INDICATION
     Dosage: DOSING DETAILS UNKNOWN
     Route: 065
     Dates: end: 201310
  2. XANAX [Suspect]
     Indication: ANXIETY
     Route: 065

REACTIONS (3)
  - Cellulitis [Not Recovered/Not Resolved]
  - Skin necrosis [Not Recovered/Not Resolved]
  - Drug interaction [Recovered/Resolved]
